FAERS Safety Report 7730774-3 (Version None)
Quarter: 2011Q3

REPORT INFORMATION
  Report Type: 
  Country: None (occurrence: None)
  Receive Date: 20110906
  Receipt Date: 20110830
  Transmission Date: 20111222
  Serious: Yes (Hospitalization)
  Sender: FDA-Public Use
  Company Number: US-BRISTOL-MYERS SQUIBB COMPANY-16016404

PATIENT
  Age: 62 Year
  Sex: Female
  Weight: 58 kg

DRUGS (2)
  1. NEUPOGEN [Suspect]
     Indication: MALIGNANT MELANOMA
     Dosage: CYCLE-250 MCG/DAY SQ ON DAYS 1-14.
     Route: 058
     Dates: start: 20110630, end: 20110824
  2. IPILIMUMAB [Suspect]
     Indication: MALIGNANT MELANOMA
     Dosage: CYCLE-10MG/KG IV OVER 90 MIN ON DAY1 Q12 WEEKS.LAST DOSE ON 11AUG11.
     Route: 042
     Dates: start: 20110630

REACTIONS (1)
  - PULMONARY EMBOLISM [None]
